FAERS Safety Report 7931304-3 (Version None)
Quarter: 2011Q4

REPORT INFORMATION
  Report Type: 
  Country: None (occurrence: None)
  Receive Date: 20111121
  Receipt Date: 20111110
  Transmission Date: 20120403
  Serious: Yes (Hospitalization)
  Sender: FDA-Public Use
  Company Number: US-BAYER-2011-037147

PATIENT
  Age: 23 Year
  Sex: Female
  Weight: 77.6 kg

DRUGS (5)
  1. ANTIBIOTICS [Concomitant]
  2. YAZ [Suspect]
     Dosage: UNK
     Dates: start: 20080326
  3. ZANTAC [Concomitant]
     Indication: DYSPEPSIA
     Dosage: 1 TABLET, ONE TIME ONLY
     Route: 048
  4. LORTAB [Concomitant]
     Indication: PAIN
     Dosage: 10 MG, PRN
     Route: 048
  5. NEXIUM [Concomitant]
     Indication: DYSPEPSIA
     Dosage: AS NEEDED
     Route: 048

REACTIONS (11)
  - ANXIETY [None]
  - BILIARY COLIC [None]
  - ABDOMINAL PAIN UPPER [None]
  - PAIN [None]
  - EMOTIONAL DISTRESS [None]
  - INJURY [None]
  - ANHEDONIA [None]
  - ABDOMINAL PAIN [None]
  - GALLBLADDER DISORDER [None]
  - PANCREATITIS [None]
  - CHOLECYSTITIS CHRONIC [None]
